FAERS Safety Report 7064882-X (Version None)
Quarter: 2010Q4

REPORT INFORMATION
  Report Type: 
  Country: None (occurrence: None)
  Receive Date: 20101027
  Receipt Date: 19890602
  Transmission Date: 20110411
  Serious: Yes (Death, Life-Threatening, Hospitalization)
  Sender: FDA-Public Use
  Company Number: US-ROCHE-890290047001

PATIENT
  Sex: Female
  Weight: 69 kg

DRUGS (6)
  1. INTERFERON ALFA-2A [Suspect]
     Route: 058
     Dates: start: 19890410, end: 19890421
  2. INTERFERON ALFA-2A [Suspect]
     Route: 058
     Dates: start: 19890501, end: 19890501
  3. FLUOROURACIL [Suspect]
     Route: 042
     Dates: start: 19890410, end: 19890414
  4. FLUOROURACIL [Suspect]
     Route: 042
     Dates: start: 19890421, end: 19890428
  5. TENORMIN [Concomitant]
     Route: 065
  6. MINOXIDIL [Concomitant]
     Route: 065

REACTIONS (3)
  - DEATH [None]
  - EPILEPSY [None]
  - RESPIRATORY ARREST [None]
